FAERS Safety Report 7883799-1 (Version None)
Quarter: 2011Q4

REPORT INFORMATION
  Report Type: 
  Country: None (occurrence: None)
  Receive Date: 20111102
  Receipt Date: 20100514
  Transmission Date: 20120403
  Serious: No
  Sender: FDA-Public Use
  Company Number: US-PFIZER INC-US-WYE-H15158310

PATIENT
  Sex: Female

DRUGS (1)
  1. ZOSYN [Suspect]
     Route: 065

REACTIONS (2)
  - SKIN IRRITATION [None]
  - HAEMORRHAGE [None]
